FAERS Safety Report 5941306-4 (Version None)
Quarter: 2008Q4

REPORT INFORMATION
  Report Type: 
  Country: None (occurrence: None)
  Receive Date: 20081103
  Receipt Date: 20081103
  Transmission Date: 20090506
  Serious: Yes (Hospitalization, Other)
  Sender: FDA-Public Use
  Company Number: None

PATIENT
  Sex: Male
  Weight: 21 kg

DRUGS (1)
  1. DEPAKOTE ER [Suspect]
     Indication: COMPLEX PARTIAL SEIZURES
     Dosage: 250 MG TID PO
     Route: 048
     Dates: start: 20080215, end: 20080902

REACTIONS (11)
  - ABNORMAL BEHAVIOUR [None]
  - AGGRESSION [None]
  - ANGER [None]
  - ANXIETY [None]
  - CONVULSION [None]
  - EMOTIONAL DISORDER [None]
  - HOSTILITY [None]
  - LETHARGY [None]
  - MOOD SWINGS [None]
  - PHYSICAL ABUSE [None]
  - VERBAL ABUSE [None]
